FAERS Safety Report 7795192 (Version 4)
Quarter: 2012Q4

REPORT INFORMATION
  Report Type: 
  Country: JP (occurrence: JP)
  Receive Date: 20110201
  Receipt Date: 20121105
  Transmission Date: 20130627
  Serious: Yes (Life-Threatening, Hospitalization)
  Sender: FDA-Public Use
  Company Number: JP-PFIZER INC-2011019935

PATIENT
  Age: 50 Year
  Sex: Female

DRUGS (2)
  1. SUTENT [Suspect]
     Indication: GASTROINTESTINAL STROMAL TUMOUR
     Dosage: 50 mg daily for 2 weeks and 37.5 mg daily for 2 weeks, cyclic
     Route: 048
     Dates: start: 200912
  2. SUTENT [Suspect]
     Dosage: 4 DF, UNK
     Dates: start: 20110222, end: 20110322

REACTIONS (5)
  - Hypothyroidism [Recovering/Resolving]
  - Pericardial effusion [Not Recovered/Not Resolved]
  - Gastrointestinal oedema [Not Recovered/Not Resolved]
  - Oedema [Not Recovered/Not Resolved]
  - Decreased appetite [Unknown]
